FAERS Safety Report 10050682 (Version 1)
Quarter: 2014Q2

REPORT INFORMATION
  Report Type: Spontaneous
  Country: US (occurrence: US)
  Receive Date: 20140401
  Receipt Date: 20140401
  Transmission Date: 20141212
  Serious: No
  Sender: FDA-Public Use
  Company Number: US-ASTRAZENECA-2013SE65935

PATIENT
  Age: 58 Year
  Sex: Male
  Weight: 102.1 kg

DRUGS (11)
  1. NEXIUM [Suspect]
     Indication: GASTROOESOPHAGEAL REFLUX DISEASE
     Route: 048
     Dates: start: 2008, end: 20130701
  2. NEXIUM [Suspect]
     Indication: GASTRIC DISORDER
     Route: 048
     Dates: start: 2008, end: 20130701
  3. NEXIUM [Suspect]
     Indication: GASTROOESOPHAGEAL REFLUX DISEASE
     Dosage: EVERY OTHER DAY
     Route: 048
     Dates: start: 20130701
  4. NEXIUM [Suspect]
     Indication: GASTRIC DISORDER
     Dosage: EVERY OTHER DAY
     Route: 048
     Dates: start: 20130701
  5. ZIAC [Concomitant]
     Indication: HYPERTENSION
     Dosage: 5/6.25 DAILY
     Route: 048
     Dates: start: 2008
  6. NORVASC [Concomitant]
     Indication: HYPERTENSION
     Route: 048
     Dates: start: 2008
  7. COZAAR [Concomitant]
     Indication: RENAL IMPAIRMENT
     Route: 048
     Dates: start: 2008
  8. JANUMET [Concomitant]
     Indication: BLOOD GLUCOSE ABNORMAL
     Dosage: 50./500 MG DAILY
     Route: 048
     Dates: start: 2012
  9. AMARYL [Concomitant]
     Indication: BLOOD GLUCOSE ABNORMAL
     Route: 048
     Dates: start: 2012
  10. BABY ASPIRIN [Concomitant]
     Indication: ANTICOAGULANT THERAPY
     Route: 048
     Dates: start: 2009
  11. VICTOZA [Concomitant]
     Indication: BLOOD GLUCOSE ABNORMAL
     Dosage: UNKNOWN DAILY
     Route: 050
     Dates: start: 20130819

REACTIONS (2)
  - Diabetes mellitus [Not Recovered/Not Resolved]
  - Intentional product misuse [Not Recovered/Not Resolved]
